APPROVED DRUG PRODUCT: HALCION
Active Ingredient: TRIAZOLAM
Strength: 0.25MG
Dosage Form/Route: TABLET;ORAL
Application: N017892 | Product #001 | TE Code: AB
Applicant: PFIZER INC
Approved: Nov 15, 1982 | RLD: Yes | RS: Yes | Type: RX